FAERS Safety Report 16065955 (Version 1)
Quarter: 2019Q2

REPORT INFORMATION
  Report Type: Spontaneous
  Country: US (occurrence: US)
  Receive Date: 20190312
  Receipt Date: 20190312
  Transmission Date: 20190711
  Serious: Yes (Disabling)
  Sender: FDA-Public Use
  Company Number: None

PATIENT
  Age: 57 Year
  Sex: Female
  Weight: 81 kg

DRUGS (9)
  1. ARMOUR THYROID [Concomitant]
     Active Substance: THYROID, PORCINE
  2. PROMETHAZINE [Concomitant]
     Active Substance: PROMETHAZINE\PROMETHAZINE HYDROCHLORIDE
  3. ZOFRAN [Concomitant]
     Active Substance: ONDANSETRON HYDROCHLORIDE
  4. AIMOVIG [Suspect]
     Active Substance: ERENUMAB-AOOE
     Indication: MIGRAINE
     Dosage: ?          QUANTITY:2 SELF INJECTOR;OTHER FREQUENCY:MONTHLY;?
     Route: 058
     Dates: start: 20180601, end: 20190201
  5. MAGNESIUM [Concomitant]
     Active Substance: MAGNESIUM
  6. DIAZEPAM. [Concomitant]
     Active Substance: DIAZEPAM
  7. VIT B [Concomitant]
     Active Substance: VITAMIN B
  8. ZOLOFT [Concomitant]
     Active Substance: SERTRALINE HYDROCHLORIDE
  9. PROPRANOLOL [Concomitant]
     Active Substance: PROPRANOLOL HYDROCHLORIDE

REACTIONS (10)
  - Anxiety [None]
  - Weight increased [None]
  - Migraine [None]
  - Depression [None]
  - Suicidal ideation [None]
  - Muscle spasms [None]
  - Tinnitus [None]
  - Pain [None]
  - Abdominal pain upper [None]
  - Constipation [None]

NARRATIVE: CASE EVENT DATE: 20180601
